FAERS Safety Report 8317744-1 (Version None)
Quarter: 2012Q2

REPORT INFORMATION
  Report Type: 
  Country: None (occurrence: None)
  Receive Date: 20120427
  Receipt Date: 20120424
  Transmission Date: 20120825
  Serious: Yes (Other)
  Sender: FDA-Public Use
  Company Number: US-SANOFI-AVENTIS-2012SA028954

PATIENT
  Age: 61 Year
  Sex: Female

DRUGS (2)
  1. PLAVIX [Suspect]
     Indication: STENT PLACEMENT
     Route: 048
     Dates: start: 20100101
  2. LORTAB [Concomitant]

REACTIONS (4)
  - SKIN ULCER [None]
  - WEIGHT DECREASED [None]
  - DECREASED APPETITE [None]
  - CONTUSION [None]
